FAERS Safety Report 5174535-0 (Version None)
Quarter: 2006Q4

REPORT INFORMATION
  Report Type: 
  Country: None (occurrence: None)
  Receive Date: 20061214
  Receipt Date: 20060530
  Transmission Date: 20070319
  Serious: No
  Sender: FDA-Public Use
  Company Number: US-AMGEN-KDL181315

PATIENT
  Sex: Male

DRUGS (2)
  1. ENBREL [Suspect]
     Indication: PSORIATIC ARTHROPATHY
     Route: 058
     Dates: start: 20030201
  2. SULFASALAZINE [Concomitant]

REACTIONS (10)
  - ARTHRALGIA [None]
  - CATARACT [None]
  - CONTUSION [None]
  - EXTREMITY CONTRACTURE [None]
  - GLAUCOMA [None]
  - SKIN BURNING SENSATION [None]
  - SKIN WARM [None]
  - VISION BLURRED [None]
  - VISUAL ACUITY REDUCED [None]
  - WALKING AID USER [None]
